FAERS Safety Report 8979399 (Version 1)
Quarter: 2012Q4

REPORT INFORMATION
  Report Type: 
  Country: US (occurrence: US)
  Receive Date: 20121221
  Receipt Date: 20121221
  Transmission Date: 20130627
  Serious: Yes (Other)
  Sender: FDA-Public Use
  Company Number: US-ABBOTT-12P-163-1021532-00

PATIENT
  Age: 46 None
  Sex: Male

DRUGS (3)
  1. HUMIRA [Suspect]
     Indication: CROHN^S DISEASE
     Dates: start: 2009
  2. HUMIRA [Suspect]
     Indication: PSORIATIC ARTHROPATHY
  3. KEPRA [Concomitant]
     Indication: CONVULSION

REACTIONS (7)
  - Grand mal convulsion [Not Recovered/Not Resolved]
  - Grand mal convulsion [Recovered/Resolved]
  - Grand mal convulsion [Recovered/Resolved]
  - Epileptic aura [Not Recovered/Not Resolved]
  - Glucose tolerance impaired [Recovering/Resolving]
  - Blood glucose increased [Recovering/Resolving]
  - Paraesthesia [Recovering/Resolving]
